FAERS Safety Report 15315936 (Version 1)
Quarter: 2018Q3

REPORT INFORMATION
  Report Type: Spontaneous
  Country: US (occurrence: US)
  Receive Date: 20180824
  Receipt Date: 20180824
  Transmission Date: 20181010
  Serious: No
  Sender: FDA-Public Use
  Company Number: US-009507513-1807USA012904

PATIENT

DRUGS (1)
  1. STEGLATRO [Suspect]
     Active Substance: ERTUGLIFLOZIN PIDOLATE
     Dosage: 15 MG (ONE TABLET) ONCE DAILY
     Route: 048

REACTIONS (3)
  - Product availability issue [Unknown]
  - No adverse event [Unknown]
  - Drug dose omission [Unknown]
